FAERS Safety Report 8078102-0 (Version None)
Quarter: 2012Q1

REPORT INFORMATION
  Report Type: 
  Country: None (occurrence: None)
  Receive Date: 20120127
  Receipt Date: 20110103
  Transmission Date: 20120608
  Serious: No
  Sender: FDA-Public Use
  Company Number: US-ABBOTT-10P-163-0688823-00

PATIENT
  Sex: Male
  Weight: 75.818 kg

DRUGS (9)
  1. HUMIRA [Suspect]
     Indication: JUVENILE ARTHRITIS
     Dates: start: 20101217
  2. HUMIRA [Suspect]
     Indication: RHEUMATOID ARTHRITIS
     Route: 058
     Dates: start: 20100924, end: 20101217
  3. METHOTREXATE [Concomitant]
     Indication: RHEUMATOID ARTHRITIS
     Dosage: WEEKLY
  4. PREDNISONE [Concomitant]
     Indication: JUVENILE ARTHRITIS
     Dosage: 1/2 MG STARTING TOMORROW DAILY
     Dates: end: 20101228
  5. NAPROSYN [Concomitant]
     Indication: PYREXIA
  6. FOLIC ACID [Concomitant]
  7. NAPROSYN [Concomitant]
     Indication: JUVENILE ARTHRITIS
  8. FOLIC ACID [Concomitant]
     Indication: VITAMIN SUPPLEMENTATION
  9. LORTAB [Concomitant]
     Indication: PAIN

REACTIONS (7)
  - MUSCULOSKELETAL STIFFNESS [None]
  - MALAISE [None]
  - INJECTION SITE PAIN [None]
  - PAIN [None]
  - INJECTION SITE ERYTHEMA [None]
  - INJECTION SITE INDURATION [None]
  - PRURITUS [None]
